FAERS Safety Report 9245909 (Version 1)
Quarter: 2013Q2

REPORT INFORMATION
  Report Type: Spontaneous
  Country: US (occurrence: US)
  Receive Date: 20130422
  Receipt Date: 20130422
  Transmission Date: 20140414
  Serious: No
  Sender: FDA-Public Use
  Company Number: US-BRISTOL-MYERS SQUIBB COMPANY-18715029

PATIENT
  Age: 71 Year
  Sex: Male
  Weight: 97.5 kg

DRUGS (9)
  1. ELIQUIS [Suspect]
  2. LIPITOR [Concomitant]
  3. GLUCOPHAGE [Concomitant]
  4. AMARYL [Concomitant]
     Dosage: 1DF= 2MG OR 4MG
  5. NIASPAN [Concomitant]
  6. LOTREL [Concomitant]
     Dosage: 1DF= 10/40MG DAILY
  7. ISOSORBIDE [Concomitant]
  8. FINASTERIDE [Concomitant]
  9. BABY ASPIRIN [Concomitant]

REACTIONS (1)
  - Dizziness [Unknown]
